FAERS Safety Report 25715063 (Version 1)
Quarter: 2025Q3

REPORT INFORMATION
  Report Type: Spontaneous
  Country: US (occurrence: US)
  Receive Date: 20250822
  Receipt Date: 20250822
  Transmission Date: 20251020
  Serious: Yes (Other)
  Sender: MYLAN
  Company Number: US-MYLANLABS-2025M1070399

PATIENT
  Age: 24 Year
  Sex: Male

DRUGS (5)
  1. BUDESONIDE [Suspect]
     Active Substance: BUDESONIDE
     Indication: IgA nephropathy
     Dosage: 16 MILLIGRAM, QD (TARGETED-RELEASE)
  2. PREDNISONE [Suspect]
     Active Substance: PREDNISONE
     Indication: IgA nephropathy
     Dosage: 5 MILLIGRAM, QD
  3. LOSARTAN [Concomitant]
     Active Substance: LOSARTAN
     Indication: Proteinuria
  4. TACROLIMUS [Concomitant]
     Active Substance: TACROLIMUS
     Indication: IgA nephropathy
  5. MYCOPHENOLATE MOFETIL [Concomitant]
     Active Substance: MYCOPHENOLATE MOFETIL
     Indication: IgA nephropathy
     Dosage: 750 MILLIGRAM, BID

REACTIONS (1)
  - Diabetes mellitus [Unknown]
